FAERS Safety Report 14582633 (Version 1)
Quarter: 2018Q1

REPORT INFORMATION
  Report Type: Spontaneous
  Country: US (occurrence: US)
  Receive Date: 20180227
  Receipt Date: 20180227
  Transmission Date: 20180509
  Serious: No
  Sender: FDA-Public Use
  Company Number: None

PATIENT
  Age: 34 Year
  Sex: Female
  Weight: 58.5 kg

DRUGS (4)
  1. SANDOZ 40 ENOXAPARIN [Suspect]
     Active Substance: ENOXAPARIN SODIUM
     Indication: COAGULOPATHY
     Dosage: QUANTITY:1 SHOT;OTHER ROUTE:INJECTED INTO STOMACH FAT?
     Dates: start: 20180227
  2. PRENATAL [Concomitant]
     Active Substance: VITAMINS
  3. SANDOZ 40 ENOXAPARIN [Suspect]
     Active Substance: ENOXAPARIN SODIUM
     Indication: PREGNANCY
     Dosage: QUANTITY:1 SHOT;OTHER ROUTE:INJECTED INTO STOMACH FAT?
     Dates: start: 20180227
  4. VITAMIN B12 [Concomitant]
     Active Substance: CYANOCOBALAMIN

REACTIONS (2)
  - Product substitution issue [None]
  - Injection site rash [None]

NARRATIVE: CASE EVENT DATE: 20180227
